FAERS Safety Report 9128832 (Version 1)
Quarter: 2013Q1

REPORT INFORMATION
  Report Type: Spontaneous
  Country: US (occurrence: US)
  Receive Date: 20130125
  Receipt Date: 20130125
  Transmission Date: 20140127
  Serious: No
  Sender: FDA-Public Use
  Company Number: US-009507513-1301USA012053

PATIENT
  Sex: 0

DRUGS (2)
  1. MIRALAX [Suspect]
     Indication: CONSTIPATION
     Dosage: UNK, QOD
     Route: 048
  2. FLEET ENEMA [Concomitant]
     Indication: CONSTIPATION
     Dosage: UNK, UNKNOWN

REACTIONS (5)
  - Dehydration [Unknown]
  - Fibromyalgia [Unknown]
  - Arthralgia [Unknown]
  - Joint instability [Unknown]
  - Incorrect drug administration duration [Unknown]
